FAERS Safety Report 6422899-X (Version None)
Quarter: 2009Q4

REPORT INFORMATION
  Report Type: 
  Country: None (occurrence: None)
  Receive Date: 20091102
  Receipt Date: 20091026
  Transmission Date: 20100525
  Serious: Yes (Death)
  Sender: FDA-Public Use
  Company Number: US-ROCHE-664637

PATIENT
  Age: 45 Year
  Sex: Male

DRUGS (3)
  1. MYCOPHENOLATE MOFETIL [Suspect]
     Indication: NEUROMYELITIS OPTICA
     Route: 048
     Dates: start: 20000101
  2. PREDNISONE [Suspect]
     Indication: NEUROMYELITIS OPTICA
     Route: 065
     Dates: start: 20000101
  3. METHYLPREDNISOLONE 4MG TAB [Suspect]
     Indication: NEUROMYELITIS OPTICA
     Route: 042

REACTIONS (3)
  - CARDIOPULMONARY FAILURE [None]
  - NEUROMYELITIS OPTICA [None]
  - RESPIRATORY FAILURE [None]
